FAERS Safety Report 5707675-5 (Version None)
Quarter: 2008Q2

REPORT INFORMATION
  Report Type: 
  Country: None (occurrence: None)
  Receive Date: 20080416
  Receipt Date: 20080404
  Transmission Date: 20081010
  Serious: Yes (Hospitalization, Other)
  Sender: FDA-Public Use
  Company Number: US-PFIZER INC-2008030728

PATIENT
  Sex: Female

DRUGS (1)
  1. CHANTIX [Suspect]
     Dosage: FREQ:EVERY DAY
     Route: 048

REACTIONS (3)
  - ABNORMAL BEHAVIOUR [None]
  - ORTHOPEDIC PROCEDURE [None]
  - PSYCHOTIC BEHAVIOUR [None]
